FAERS Safety Report 26119625 (Version 1)
Quarter: 2025Q4

REPORT INFORMATION
  Report Type: Spontaneous
  Country: PS (occurrence: PS)
  Receive Date: 20251204
  Receipt Date: 20251204
  Transmission Date: 20260117
  Serious: Yes (Death, Life-Threatening, Hospitalization)
  Sender: ACCORD
  Company Number: PS-MLMSERVICE-20251113-PI710929-00306-1

PATIENT
  Age: 18 Year
  Sex: Female

DRUGS (7)
  1. TACROLIMUS [Suspect]
     Active Substance: TACROLIMUS
     Indication: Lupus nephritis
     Dosage: 1 YEAR AGO, WITH A GOOD RESPONSE
  2. RITUXIMAB [Suspect]
     Active Substance: RITUXIMAB
     Indication: Lupus nephritis
     Dosage: 1 YEAR AGO, WITH A GOOD RESPONSE
  3. CYCLOPHOSPHAMIDE [Suspect]
     Active Substance: CYCLOPHOSPHAMIDE
     Indication: Glomerulonephritis rapidly progressive
  4. METHYLPREDNISOLONE [Suspect]
     Active Substance: METHYLPREDNISOLONE
     Indication: Glomerulonephritis rapidly progressive
     Dosage: HIGH-DOSE; PULSE DOSAGES OF METHYLPREDNISOLONE
  5. METHYLPREDNISOLONE [Suspect]
     Active Substance: METHYLPREDNISOLONE
     Indication: Glomerulonephritis rapidly progressive
  6. TACROLIMUS [Suspect]
     Active Substance: TACROLIMUS
     Indication: Systemic lupus erythematosus
     Dosage: 1 YEAR AGO, WITH A GOOD RESPONSE
  7. RITUXIMAB [Suspect]
     Active Substance: RITUXIMAB
     Indication: Systemic lupus erythematosus
     Dosage: 1 YEAR AGO, WITH A GOOD RESPONSE

REACTIONS (8)
  - Cytomegalovirus colitis [Fatal]
  - Pneumonitis [Fatal]
  - Pancreatitis acute [Fatal]
  - Acute hepatic failure [Fatal]
  - Disseminated intravascular coagulation [Fatal]
  - Cytomegalovirus infection [Fatal]
  - Sepsis [Fatal]
  - Multiple organ dysfunction syndrome [Fatal]
